FAERS Safety Report 5106180-7 (Version None)
Quarter: 2006Q3

REPORT INFORMATION
  Report Type: 
  Country: None (occurrence: None)
  Receive Date: 20060912
  Receipt Date: 20060828
  Transmission Date: 20061208
  Serious: Yes (Other)
  Sender: FDA-Public Use
  Company Number: 2006084148

PATIENT
  Age: 49 Year
  Sex: Female

DRUGS (3)
  1. CELEBRA (CELECOXIB) [Suspect]
     Indication: CLAVICLE FRACTURE
     Dosage: 200 MG (200 MG, 1 IN 1 D); ORAL
     Route: 048
     Dates: start: 20060625, end: 20060625
  2. HYDROCHLOROTHIAZDE TAB [Concomitant]
  3. CAPTOPRIL [Concomitant]

REACTIONS (9)
  - ARTHRALGIA [None]
  - ARTHROPATHY [None]
  - GAIT DISTURBANCE [None]
  - MUSCLE RIGIDITY [None]
  - OEDEMA PERIPHERAL [None]
  - PARALYSIS [None]
  - PURULENCE [None]
  - TREMOR [None]
  - YELLOW SKIN [None]
